FAERS Safety Report 24035231 (Version 2)
Quarter: 2024Q3

REPORT INFORMATION
  Report Type: Report from Study
  Country: US (occurrence: US)
  Receive Date: 20240701
  Receipt Date: 20240731
  Transmission Date: 20241016
  Serious: Yes (Hospitalization)
  Sender: MYLAN
  Company Number: US-MYLANLABS-2024M1060765

PATIENT
  Sex: Male
  Weight: 90 kg

DRUGS (1)
  1. CLOZAPINE [Suspect]
     Active Substance: CLOZAPINE
     Indication: Product used for unknown indication
     Dosage: 25 MILLIGRAM, QD (25MG DAILY AT BEDTIME)
     Route: 065
     Dates: end: 20240430

REACTIONS (2)
  - Subdural haematoma [Unknown]
  - Mental impairment [Unknown]
